FAERS Safety Report 9196113 (Version 1)
Quarter: 2013Q1

REPORT INFORMATION
  Report Type: Report from Study
  Country: US (occurrence: GB)
  Receive Date: 20130328
  Receipt Date: 20130328
  Transmission Date: 20140127
  Serious: Yes (Other)
  Sender: FDA-Public Use
  Company Number: US-BAYER-2013-034833

PATIENT
  Age: 40 Year
  Sex: Female

DRUGS (3)
  1. SIMVASTATIN [Suspect]
     Indication: HYPERCHOLESTEROLAEMIA
     Dosage: DAILY DOSE 20 MG
  2. ACETYLSALICYLIC ACID [Suspect]
  3. DILTIAZEM [Concomitant]

REACTIONS (3)
  - Premature delivery [None]
  - Exposure during pregnancy [None]
  - Off label use [None]
